FAERS Safety Report 25943324 (Version 1)
Quarter: 2025Q4

REPORT INFORMATION
  Report Type: Spontaneous
  Country: US (occurrence: None)
  Receive Date: 20251020
  Receipt Date: 20251020
  Transmission Date: 20260117
  Serious: Yes (Hospitalization)
  Sender: FDA-CTU
  Company Number: None

PATIENT
  Age: 59 Year
  Sex: Female

DRUGS (10)
  1. MYCOPHENOLIC ACID [Suspect]
     Active Substance: MYCOPHENOLIC ACID
     Indication: Lung transplant
     Dosage: FREQUENCY : TWICE A DAY;?
     Route: 048
     Dates: start: 20250922
  2. TACROLIMUS [Suspect]
     Active Substance: TACROLIMUS
     Indication: Lung transplant
     Dosage: FREQUENCY : TWICE A DAY;?
     Route: 048
     Dates: start: 20250922
  3. Voriconazole 500mg [Concomitant]
  4. Bactrim 400-80mg [Concomitant]
  5. ROSUVASTATIN [Concomitant]
     Active Substance: ROSUVASTATIN
  6. PREDNISONE [Concomitant]
     Active Substance: PREDNISONE
  7. OMEPRAZOLE [Concomitant]
     Active Substance: OMEPRAZOLE
  8. MIDODRINE [Concomitant]
     Active Substance: MIDODRINE
  9. METOPROLOL TARTRATE [Concomitant]
     Active Substance: METOPROLOL TARTRATE
  10. MELATONIN [Concomitant]
     Active Substance: MELATONIN

REACTIONS (1)
  - Pulmonary thrombosis [None]

NARRATIVE: CASE EVENT DATE: 20251009
